FAERS Safety Report 7721631-7 (Version None)
Quarter: 2011Q3

REPORT INFORMATION
  Report Type: 
  Country: None (occurrence: None)
  Receive Date: 20110831
  Receipt Date: 20110819
  Transmission Date: 20111222
  Serious: Yes (Death, Hospitalization)
  Sender: FDA-Public Use
  Company Number: US-GLAXOSMITHKLINE-A0747313A

PATIENT
  Age: 73 Year
  Sex: Female
  Weight: 72.7 kg

DRUGS (5)
  1. AVANDIA [Suspect]
     Indication: TYPE 2 DIABETES MELLITUS
     Dosage: 4MG PER DAY
     Route: 048
     Dates: end: 20070614
  2. PRILOSEC [Concomitant]
  3. NORVASC [Concomitant]
  4. ALBUTEROL SULFATE AUTOHALER [Concomitant]
  5. PRILOSEC [Concomitant]

REACTIONS (4)
  - CARDIAC FAILURE CONGESTIVE [None]
  - CEREBROVASCULAR ACCIDENT [None]
  - ACUTE CORONARY SYNDROME [None]
  - RESPIRATORY FAILURE [None]
